FAERS Safety Report 7473312-5 (Version None)
Quarter: 2011Q2

REPORT INFORMATION
  Report Type: 
  Country: None (occurrence: None)
  Receive Date: 20110503
  Receipt Date: 20110414
  Transmission Date: 20111010
  Serious: Yes (Life-Threatening, Other)
  Sender: FDA-Public Use
  Company Number: 20110212

PATIENT
  Age: 1 Day
  Sex: Female
  Weight: 1.14 kg

DRUGS (10)
  1. TRACE-4 MULTIPLE TRACE [Suspect]
     Indication: PARENTERAL NUTRITION
     Dosage: 0.34 ML ONCE INTRAVENOUS DRIP
     Route: 041
     Dates: start: 20110318, end: 20110319
  2. TROPHAMINE [Concomitant]
  3. SODIUM CHLORIDE [Concomitant]
  4. CALCIUM GLUCONATE INJ [Suspect]
     Indication: PARENTERAL NUTRITION
     Dosage: 10.04 ML ONCE INTRAVENOUS DRIP
     Route: 041
     Dates: start: 20110318, end: 20110319
  5. L-CYSTEINE [Concomitant]
  6. SODIUM PHOSPHATE [Concomitant]
  7. STERILE WATER FOR INJECTION [Concomitant]
  8. K ACETATE [Concomitant]
  9. D70% [Concomitant]
  10. PEDIATRIC MULTIVITAMIN [Concomitant]

REACTIONS (6)
  - TOXICITY TO VARIOUS AGENTS [None]
  - PRODUCT CONTAMINATION CHEMICAL [None]
  - POLYURIA [None]
  - GLYCOSURIA [None]
  - HYPOGLYCAEMIA [None]
  - HYPOKALAEMIA [None]
